FAERS Safety Report 11522873 (Version 1)
Quarter: 2015Q3

REPORT INFORMATION
  Report Type: Spontaneous
  Country: AT (occurrence: AT)
  Receive Date: 20150918
  Receipt Date: 20150918
  Transmission Date: 20151125
  Serious: Yes (Other)
  Sender: FDA-Public Use
  Company Number: AT-ASTRAZENECA-2015SE88015

PATIENT
  Age: 73 Year
  Sex: Male

DRUGS (1)
  1. ROSUVASTATIN [Suspect]
     Active Substance: ROSUVASTATIN
     Dosage: LOW DOSE
     Route: 048

REACTIONS (2)
  - Stress cardiomyopathy [Unknown]
  - Rhabdomyolysis [Unknown]
